FAERS Safety Report 8239548-0 (Version None)
Quarter: 2012Q1

REPORT INFORMATION
  Report Type: 
  Country: None (occurrence: None)
  Receive Date: 20120328
  Receipt Date: 20120323
  Transmission Date: 20120608
  Serious: Yes (Death)
  Sender: FDA-Public Use
  Company Number: JP-SANOFI-AVENTIS-2012SA020782

PATIENT
  Age: 61 Year
  Sex: Male

DRUGS (2)
  1. AMARYL [Suspect]
     Route: 065
     Dates: start: 20100801, end: 20101101
  2. PLAVIX [Suspect]
     Route: 065
     Dates: start: 20100801, end: 20101101

REACTIONS (1)
  - LIVER DISORDER [None]
